FAERS Safety Report 4877434-4 (Version None)
Quarter: 2006Q1

REPORT INFORMATION
  Report Type: 
  Country: None (occurrence: None)
  Receive Date: 20060109
  Receipt Date: 20051227
  Transmission Date: 20060701
  Serious: Yes (Death, Hospitalization)
  Sender: FDA-Public Use
  Company Number: 2005-BP-21855RO

PATIENT
  Age: 81 Year
  Sex: Female

DRUGS (6)
  1. METHOTREXATE [Suspect]
     Dosage: 25 MG PER WEEK , PO
     Route: 048
  2. CARBIMAZOLE (CARBIMAZOLE) [Concomitant]
  3. CELECOXIB (CELECOXIB) [Concomitant]
  4. FOLIC ACID [Concomitant]
  5. OMEPRAZOLE [Concomitant]
  6. ALENDRONATE (ALENDRONATE SODIUM) [Concomitant]

REACTIONS (4)
  - DYSPNOEA [None]
  - MUCOSAL INFLAMMATION [None]
  - PANCYTOPENIA [None]
  - SEPSIS [None]
